FAERS Safety Report 23480905 (Version 1)
Quarter: 2024Q1

REPORT INFORMATION
  Report Type: Spontaneous
  Country: US (occurrence: US)
  Receive Date: 20240205
  Receipt Date: 20240205
  Transmission Date: 20240410
  Serious: No
  Sender: FDA-Public Use
  Company Number: US-ABBVIE-5613619

PATIENT
  Sex: Female
  Weight: 74.389 kg

DRUGS (6)
  1. SYNTHROID [Suspect]
     Active Substance: LEVOTHYROXINE SODIUM
     Indication: Thyroid cancer
     Dosage: TIME INTERVAL: 0.16666667 WEEKS: FORM STRENGTH: 150 MICROGRAM?START DATE TEXT: 4 YEARS AGO?6 DAYS...
     Route: 048
     Dates: start: 2020
  2. SYNTHROID [Suspect]
     Active Substance: LEVOTHYROXINE SODIUM
     Indication: Thyroid cancer
     Dosage: FORM STRENGTH: 120 MICROGRAM?START DATE TEXT: 35-40 YEARS AGO
     Route: 048
  3. SYNTHROID [Suspect]
     Active Substance: LEVOTHYROXINE SODIUM
     Indication: Thyroid cancer
     Dosage: FORM STRENGTH: 120 MICROGRAM? STOP DATE TEXT: 4 YEARS AGO
     Route: 048
     Dates: end: 2020
  4. LEVOTHYROXINE [Suspect]
     Active Substance: LEVOTHYROXINE\LEVOTHYROXINE SODIUM
     Indication: Thyroid cancer
     Dosage: FORM STRENGTH: 120 MICROGRAM? START DATE TEXT: 30 YEARS AGO?DURATION TEXT: NO LONGER THAN 6 MONTH...
     Route: 048
  5. ALLEGRA [Concomitant]
     Active Substance: FEXOFENADINE HYDROCHLORIDE
     Indication: Hypersensitivity
  6. CITALOPRAM [Concomitant]
     Active Substance: CITALOPRAM HYDROBROMIDE
     Indication: Temporomandibular joint syndrome

REACTIONS (5)
  - Trichorrhexis [Recovered/Resolved]
  - Alopecia [Not Recovered/Not Resolved]
  - Weight increased [Not Recovered/Not Resolved]
  - Trichorrhexis [Not Recovered/Not Resolved]
  - Alopecia [Recovered/Resolved]
